FAERS Safety Report 24687981 (Version 2)
Quarter: 2024Q4

REPORT INFORMATION
  Report Type: Spontaneous
  Country: US (occurrence: US)
  Receive Date: 20241202
  Receipt Date: 20241213
  Transmission Date: 20250114
  Serious: No
  Sender: SANOFI AVENTIS
  Company Number: US-SANOFI-02322038

PATIENT
  Age: 2 Year
  Sex: Male

DRUGS (4)
  1. DUPIXENT [Suspect]
     Active Substance: DUPILUMAB
     Indication: Dermatitis atopic
     Dosage: 200 MG, QM
     Route: 065
     Dates: start: 20240219
  2. CLOBETASOL [Concomitant]
     Active Substance: CLOBETASOL
  3. MUPIROCIN [Concomitant]
     Active Substance: MUPIROCIN
  4. VANICREAM [Concomitant]
     Active Substance: TITANIUM DIOXIDE\ZINC OXIDE

REACTIONS (4)
  - Pyrexia [Unknown]
  - Injection site pain [Unknown]
  - Lack of injection site rotation [Unknown]
  - Product storage error [Unknown]

NARRATIVE: CASE EVENT DATE: 20241113
